FAERS Safety Report 4405353-6 (Version None)
Quarter: 2004Q3

REPORT INFORMATION
  Report Type: 
  Country: None (occurrence: None)
  Receive Date: 20040715
  Receipt Date: 20040629
  Transmission Date: 20050211
  Serious: Yes (Other)
  Sender: FDA-Public Use
  Company Number: JP-2004-026617

PATIENT
  Age: 49 Year
  Sex: Female
  Weight: 50 kg

DRUGS (7)
  1. BETAFERON [Suspect]
     Indication: MULTIPLE SCLEROSIS
     Dosage: 8 MIU, EVERY 2D, SUBCUTANEOUS
     Route: 058
     Dates: start: 20010205
  2. TEGRETOL [Concomitant]
  3. ZANTAC [Concomitant]
  4. PREDNISONE [Concomitant]
  5. ALFAROL (ALFACALCIDOL) CAPSULE [Concomitant]
  6. FAMOTIDINE [Concomitant]
  7. SELBEX (TEPRENONE) CAPSULE [Concomitant]

REACTIONS (3)
  - DISEASE RECURRENCE [None]
  - HEPATITIS B [None]
  - MULTIPLE SCLEROSIS [None]
